FAERS Safety Report 21920575 (Version 2)
Quarter: 2023Q1

REPORT INFORMATION
  Report Type: Spontaneous
  Country: JP (occurrence: JP)
  Receive Date: 20230127
  Receipt Date: 20230210
  Transmission Date: 20230417
  Serious: Yes (Hospitalization)
  Sender: FDA-Public Use
  Company Number: JP-VIATRISJAPAN-2023M1006961AA

PATIENT
  Age: 92 Year
  Sex: Female
  Weight: 29.5 kg

DRUGS (7)
  1. AMLODIPINE [Suspect]
     Active Substance: AMLODIPINE BESYLATE
     Indication: Product used for unknown indication
     Dosage: 5 MILLIGRAM, QD,  AFTER BREAKFAST
     Route: 065
  2. ALACEPRIL [Suspect]
     Active Substance: ALACEPRIL
     Indication: Product used for unknown indication
     Dosage: 25 MILLIGRAM, QD, AFTER BREAKFAST
     Route: 065
  3. FUROSEMIDE [Suspect]
     Active Substance: FUROSEMIDE
     Indication: Product used for unknown indication
     Dosage: 0.5 GRAM, QD, AFTER BREAKFAST
     Route: 065
  4. LOXOPROFEN SODIUM DIHYDRATE [Suspect]
     Active Substance: LOXOPROFEN SODIUM DIHYDRATE
     Indication: Product used for unknown indication
     Dosage: 0.6 GRAM, BID, AFTER BREAKFAST AND DINNER
     Route: 065
  5. AZELASTINE HYDROCHLORIDE [Suspect]
     Active Substance: AZELASTINE HYDROCHLORIDE
     Indication: Product used for unknown indication
     Dosage: 1 MILLIGRAM, BID, AFTER BREAKFAST AND DINNER
     Route: 065
  6. REBAMIPIDE [Concomitant]
     Active Substance: REBAMIPIDE
     Indication: Product used for unknown indication
     Dosage: 100 MILLIGRAM, BID, AFTER BREAKFAST AND DINNER
     Route: 065
  7. MAGNESIUM OXIDE [Concomitant]
     Active Substance: MAGNESIUM OXIDE
     Indication: Constipation
     Dosage: 0.5 GRAM, QD, AFTER DINNER
     Route: 065

REACTIONS (3)
  - Decreased appetite [Unknown]
  - Blood pressure decreased [Unknown]
  - Apathy [Unknown]
